FAERS Safety Report 11934993 (Version 1)
Quarter: 2016Q1

REPORT INFORMATION
  Report Type: Spontaneous
  Country: US (occurrence: None)
  Receive Date: 20160120
  Receipt Date: 20160120
  Transmission Date: 20160526
  Serious: Yes (Disabling)
  Sender: FDA-Public Use
  Company Number: None

PATIENT
  Age: 62 Year
  Sex: Female
  Weight: 61.24 kg

DRUGS (11)
  1. BELSOMRA [Concomitant]
     Active Substance: SUVOREXANT
  2. CALCIUM W MAGNESIUM [Concomitant]
  3. LEVOFLOXACIN. [Suspect]
     Active Substance: LEVOFLOXACIN
     Indication: PNEUMONIA
     Dosage: 500MG/1 DAY
     Route: 048
     Dates: start: 20151201, end: 20151211
  4. XANAX [Concomitant]
     Active Substance: ALPRAZOLAM
  5. VYVANSE [Concomitant]
     Active Substance: LISDEXAMFETAMINE DIMESYLATE
  6. VITAMIN D [Concomitant]
     Active Substance: CHOLECALCIFEROL
  7. MULTIVITAMIN [Concomitant]
     Active Substance: VITAMINS
  8. PROBIOTICS [Concomitant]
     Active Substance: PROBIOTICS NOS
  9. MSCONTIN [Concomitant]
  10. ALEVE [Concomitant]
     Active Substance: NAPROXEN SODIUM
  11. COQ10 [Concomitant]
     Active Substance: UBIDECARENONE

REACTIONS (5)
  - Activities of daily living impaired [None]
  - Muscle spasms [None]
  - Joint range of motion decreased [None]
  - Musculoskeletal stiffness [None]
  - Asthenia [None]

NARRATIVE: CASE EVENT DATE: 20151214
